FAERS Safety Report 18904962 (Version 3)
Quarter: 2021Q2

REPORT INFORMATION
  Report Type: Spontaneous
  Country: US (occurrence: US)
  Receive Date: 20210217
  Receipt Date: 20210511
  Transmission Date: 20210717
  Serious: No
  Sender: FDA-Public Use
  Company Number: US-MYLANLABS-2021M1007984

PATIENT
  Age: 42 Year
  Sex: Female
  Weight: 86 kg

DRUGS (3)
  1. ESTRADIOL TRANSDERMAL SYSTEM [Suspect]
     Active Substance: ESTRADIOL
     Indication: HORMONE REPLACEMENT THERAPY
  2. ESTRADIOL TRANSDERMAL SYSTEM [Suspect]
     Active Substance: ESTRADIOL
     Indication: PREMATURE MENOPAUSE
     Dosage: 0.05 MILLIGRAM, QD
     Route: 062
     Dates: start: 20210129, end: 20210205
  3. PROGESTERONE. [Concomitant]
     Active Substance: PROGESTERONE
     Dosage: UNK

REACTIONS (7)
  - Application site rash [Recovered/Resolved]
  - Application site pruritus [Unknown]
  - Product quality issue [Not Recovered/Not Resolved]
  - Application site mass [Not Recovered/Not Resolved]
  - Application site exfoliation [Not Recovered/Not Resolved]
  - Application site erythema [Not Recovered/Not Resolved]
  - Application site acne [Not Recovered/Not Resolved]

NARRATIVE: CASE EVENT DATE: 20210129
